FAERS Safety Report 5281920-5 (Version None)
Quarter: 2007Q1

REPORT INFORMATION
  Report Type: 
  Country: None (occurrence: None)
  Receive Date: 20070330
  Receipt Date: 20070321
  Transmission Date: 20070707
  Serious: Yes (Hospitalization)
  Sender: FDA-Public Use
  Company Number: US-JNJFOC-20070303720

PATIENT
  Age: 40 Year
  Sex: Male

DRUGS (13)
  1. HYDROCODONE BITARTRATE + ACETAMINOPHEN [Suspect]
     Indication: DRUG USE FOR UNKNOWN INDICATION
  2. ACETAMINOPHEN [Suspect]
  3. ACETAMINOPHEN [Suspect]
     Indication: DRUG USE FOR UNKNOWN INDICATION
  4. CARISOPRODOL [Concomitant]
  5. METOPROLOL SUCCINATE [Concomitant]
  6. CANDESARTAN [Concomitant]
  7. RABEPRAZOLE SODIUM [Concomitant]
  8. THIAMINE [Concomitant]
  9. FOLATE [Concomitant]
  10. AMLODIPINE [Concomitant]
  11. CITALOPRAM HYDROBROMIDE [Concomitant]
  12. PANTOPRAZOLE SODIUM [Concomitant]
  13. VALSARTAN [Concomitant]

REACTIONS (2)
  - CHOLECYSTITIS [None]
  - METABOLIC ACIDOSIS [None]
